FAERS Safety Report 5382308-9 (Version None)
Quarter: 2007Q3

REPORT INFORMATION
  Report Type: 
  Country: None (occurrence: None)
  Receive Date: 20070709
  Receipt Date: 20070627
  Transmission Date: 20080115
  Serious: Yes (Death, Hospitalization)
  Sender: FDA-Public Use
  Company Number: FR-PFIZER INC-2007018388

PATIENT
  Sex: Male

DRUGS (7)
  1. CHAMPIX [Suspect]
     Indication: EX-SMOKER
     Route: 048
     Dates: start: 20070305, end: 20070307
  2. SEROPRAM [Suspect]
     Dates: start: 20070305, end: 20070307
  3. BISOPROLOL FUMARATE [Concomitant]
  4. RAMIPRIL [Concomitant]
  5. PRAVASTATIN SODIUM [Concomitant]
  6. ASPIRIN [Concomitant]
  7. DIGOXIN [Concomitant]

REACTIONS (7)
  - ABDOMINAL PAIN [None]
  - AGITATION [None]
  - BACK PAIN [None]
  - HYPOTENSION [None]
  - LOSS OF CONSCIOUSNESS [None]
  - MALAISE [None]
  - RESPIRATORY FAILURE [None]
